FAERS Safety Report 8154157-X (Version None)
Quarter: 2012Q1

REPORT INFORMATION
  Report Type: 
  Country: None (occurrence: None)
  Receive Date: 20120221
  Receipt Date: 20120206
  Transmission Date: 20120608
  Serious: Yes (Hospitalization, Other)
  Sender: FDA-Public Use
  Company Number: FR-CELGENEUS-056-21880-10110800

PATIENT
  Sex: Female
  Weight: 60 kg

DRUGS (16)
  1. CALCIUM CARBONATE [Concomitant]
     Dosage: 2
     Route: 065
  2. POTASSIUM CHLORIDE [Concomitant]
     Route: 048
     Dates: start: 20101016, end: 20101017
  3. ALPRAZOLAM [Concomitant]
     Indication: ANXIETY
     Dosage: .25 MILLIGRAM
     Route: 048
     Dates: start: 20101016, end: 20101016
  4. ACETAMINOPHEN [Concomitant]
     Route: 048
     Dates: start: 20101016, end: 20101017
  5. ACETAMINOPHEN [Concomitant]
     Indication: PAIN
  6. EPO [Concomitant]
     Route: 065
  7. REVLIMID [Suspect]
     Route: 048
     Dates: start: 20101006, end: 20101026
  8. NEORECORMON ^ROCHE^ [Concomitant]
     Dosage: 8571.4286 IU (INTERNATIONAL UNIT)
     Route: 058
  9. RAMIPRIL [Concomitant]
  10. GLUCIDION [Concomitant]
     Dosage: 1 LITERS
     Route: 041
     Dates: start: 20101015, end: 20101017
  11. DEXAMETHASONE [Suspect]
     Indication: MULTIPLE MYELOMA
     Dosage: 2.6667 MILLIGRAM
     Route: 048
     Dates: start: 20100224, end: 20100323
  12. DEXAMETHASONE [Suspect]
     Dosage: 2.6667 MILLIGRAM
     Route: 048
     Dates: start: 20100324, end: 20101102
  13. ACETAMINOPHEN AND TRAMADOL HCL [Concomitant]
     Dosage: 0.25
     Route: 065
  14. PREVISCAN [Concomitant]
     Indication: ANTICOAGULANT THERAPY
     Dosage: 1/4 AND 1/2
     Route: 065
  15. REVLIMID [Suspect]
     Indication: MULTIPLE MYELOMA
     Dosage: 10 MILLIGRAM
     Route: 048
     Dates: start: 20100224
  16. XANAX [Concomitant]
     Dosage: 0.25
     Route: 065

REACTIONS (2)
  - STOMATITIS [None]
  - GENERAL PHYSICAL HEALTH DETERIORATION [None]
